FAERS Safety Report 9477876 (Version 2)
Quarter: 2013Q3

REPORT INFORMATION
  Report Type: Spontaneous
  Country: IE (occurrence: IE)
  Receive Date: 20130827
  Receipt Date: 20130827
  Transmission Date: 20140515
  Serious: Yes (Hospitalization, Other)
  Sender: FDA-Public Use
  Company Number: IE-RANBAXY-2006US-01876

PATIENT
  Age: 75 Year
  Sex: Male

DRUGS (3)
  1. AMOXICILLIN CLAVULANATE POTASSIUM [Suspect]
     Indication: LOWER RESPIRATORY TRACT INFECTION
     Dosage: 250/125 MG, TID
     Route: 048
  2. AMOXICILLIN CLAVULANATE POTASSIUM [Interacting]
     Indication: COUGH
  3. WARFARIN [Interacting]
     Indication: ANTICOAGULANT THERAPY
     Route: 065

REACTIONS (3)
  - Abdominal wall haematoma [Recovered/Resolved]
  - International normalised ratio [Recovered/Resolved]
  - Drug interaction [Recovered/Resolved]
